FAERS Safety Report 13939063 (Version 3)
Quarter: 2017Q3

REPORT INFORMATION
  Report Type: Report from Study
  Country: US (occurrence: US)
  Receive Date: 20170906
  Receipt Date: 20170929
  Transmission Date: 20171127
  Serious: Yes (Hospitalization, Other)
  Sender: FDA-Public Use
  Company Number: US-BRISTOL-MYERS SQUIBB COMPANY-BMS-2017-078146

PATIENT
  Age: 45 Year
  Sex: Male
  Weight: 95.9 kg

DRUGS (4)
  1. IPILIMUMAB [Suspect]
     Active Substance: IPILIMUMAB
     Indication: GLIOBLASTOMA MULTIFORME
     Dosage: 96 MG, UNK
     Route: 042
     Dates: start: 20170608, end: 20170804
  2. TEMOZOLOMIDE. [Suspect]
     Active Substance: TEMOZOLOMIDE
     Indication: PRODUCT USED FOR UNKNOWN INDICATION
     Dosage: 1000 MG, UNK
     Route: 065
     Dates: start: 20170805, end: 20170902
  3. TEMOZOLOMIDE. [Suspect]
     Active Substance: TEMOZOLOMIDE
     Indication: GLIOBLASTOMA MULTIFORME
     Dosage: 2150 MG, UNK
     Route: 065
     Dates: start: 20170608
  4. NIVOLUMAB [Suspect]
     Active Substance: NIVOLUMAB
     Indication: GLIOBLASTOMA MULTIFORME
     Dosage: 96 MG, UNK
     Route: 042
     Dates: start: 20170608, end: 20170804

REACTIONS (6)
  - Angina pectoris [Recovered/Resolved]
  - Pericardial effusion [Recovering/Resolving]
  - Dyspnoea [Recovered/Resolved]
  - Muscular weakness [Recovering/Resolving]
  - Brain oedema [Recovering/Resolving]
  - Diarrhoea [Recovered/Resolved]

NARRATIVE: CASE EVENT DATE: 20170818
